FAERS Safety Report 5820362-8 (Version None)
Quarter: 2008Q3

REPORT INFORMATION
  Report Type: 
  Country: None (occurrence: None)
  Receive Date: 20080724
  Receipt Date: 20070615
  Transmission Date: 20090109
  Serious: No
  Sender: FDA-Public Use
  Company Number: A0656928A

PATIENT
  Age: 51 Year
  Sex: Male

DRUGS (5)
  1. AVANDIA [Suspect]
     Dosage: 2MG PER DAY
     Route: 048
     Dates: start: 20070416
  2. LOTREL [Concomitant]
  3. PYRIDOXINE HCL [Concomitant]
  4. ALLEGRA [Concomitant]
  5. METFORMIN [Concomitant]

REACTIONS (1)
  - HEPATOMEGALY [None]
